FAERS Safety Report 24840366 (Version 5)
Quarter: 2025Q2

REPORT INFORMATION
  Report Type: Spontaneous
  Country: US (occurrence: US)
  Receive Date: 20250114
  Receipt Date: 20250620
  Transmission Date: 20250717
  Serious: Yes (Other)
  Sender: CATALYST PHARMA
  Company Number: US-CATALYST PHARMACEUTICALS, INC-US-CATA-24-01010

PATIENT
  Sex: Male
  Weight: 68.027 kg

DRUGS (3)
  1. FIRDAPSE [Suspect]
     Active Substance: AMIFAMPRIDINE PHOSPHATE
     Indication: Myasthenic syndrome
     Dosage: 30 MG/DAY
     Route: 048
     Dates: start: 20240614
  2. FIRDAPSE [Suspect]
     Active Substance: AMIFAMPRIDINE PHOSPHATE
     Dosage: 60 MG/DAY
     Route: 048
  3. FIRDAPSE [Suspect]
     Active Substance: AMIFAMPRIDINE PHOSPHATE
     Dosage: 20 MG EVERY 3 HOURS FOR A TOTAL OF 80 MG PER DAY
     Route: 048

REACTIONS (15)
  - Myasthenic syndrome [Unknown]
  - Disease progression [Unknown]
  - Intervertebral disc protrusion [Recovering/Resolving]
  - Condition aggravated [Recovering/Resolving]
  - Fall [Unknown]
  - Dysphonia [Unknown]
  - Fatigue [Unknown]
  - Wheelchair user [Unknown]
  - Weight decreased [Not Recovered/Not Resolved]
  - Walking aid user [Not Recovered/Not Resolved]
  - Balance disorder [Recovering/Resolving]
  - Muscular weakness [Recovering/Resolving]
  - Muscle spasms [Unknown]
  - Asthenia [Unknown]
  - Drug ineffective [Unknown]

NARRATIVE: CASE EVENT DATE: 20240101
